FAERS Safety Report 7373003-5 (Version None)
Quarter: 2011Q1

REPORT INFORMATION
  Report Type: 
  Country: None (occurrence: None)
  Receive Date: 20110311
  Receipt Date: 20110228
  Transmission Date: 20110831
  Serious: Yes (Hospitalization)
  Sender: FDA-Public Use
  Company Number: 2011SP008810

PATIENT
  Age: 34 Year
  Sex: Male

DRUGS (8)
  1. LITHIUM CARBONATE [Concomitant]
  2. LAMOTRIGINE [Concomitant]
  3. SYNTHROID [Concomitant]
  4. SEROQUEL [Concomitant]
  5. OXCARBAZEPINE [Concomitant]
  6. SAPHRIS [Suspect]
     Indication: BIPOLAR DISORDER
     Dosage: 10, 5 MG, BID
     Dates: start: 20110201
  7. SAPHRIS [Suspect]
     Indication: BIPOLAR DISORDER
     Dosage: 10, 5 MG, BID
     Dates: start: 20110201, end: 20110201
  8. DOXEPIN [Concomitant]

REACTIONS (4)
  - CONDITION AGGRAVATED [None]
  - DEPRESSION [None]
  - BIPOLAR DISORDER [None]
  - PARAESTHESIA [None]
